FAERS Safety Report 11288682 (Version 3)
Quarter: 2015Q3

REPORT INFORMATION
  Report Type: Spontaneous
  Country: DE (occurrence: DE)
  Receive Date: 20150721
  Receipt Date: 20150902
  Transmission Date: 20151125
  Serious: Yes (Life-Threatening, Hospitalization)
  Sender: FDA-Public Use
  Company Number: DE-TEVA-579450USA

PATIENT
  Age: 32 Year
  Sex: Female

DRUGS (7)
  1. ADASUVE [Suspect]
     Active Substance: LOXAPINE
     Indication: AGITATION
     Route: 055
     Dates: start: 20150506
  2. DIAZEPAM. [Concomitant]
     Active Substance: DIAZEPAM
     Indication: AGITATION
     Route: 048
     Dates: start: 20150506
  3. VALPROATE [Concomitant]
     Active Substance: VALPROATE SODIUM
  4. CHLORPROTHIXEN [Concomitant]
     Indication: AGITATION
     Route: 048
     Dates: start: 20150506
  5. SYCREST [Concomitant]
     Active Substance: ASENAPINE MALEATE
     Indication: AGITATION
     Route: 048
     Dates: start: 20150506
  6. CLOZAPINE. [Concomitant]
     Active Substance: CLOZAPINE
     Indication: SEIZURE
     Route: 048
     Dates: start: 20150506
  7. HALDOL [Concomitant]
     Active Substance: HALOPERIDOL
     Indication: AGITATION
     Route: 048
     Dates: start: 20150506

REACTIONS (4)
  - Respiratory failure [Unknown]
  - Neutropenia [Unknown]
  - Sepsis [Recovered/Resolved]
  - Pneumonia [Recovered/Resolved]

NARRATIVE: CASE EVENT DATE: 20150531
